FAERS Safety Report 16064599 (Version 1)
Quarter: 2019Q1

REPORT INFORMATION
  Report Type: Spontaneous
  Country: US (occurrence: US)
  Receive Date: 20190312
  Receipt Date: 20190312
  Transmission Date: 20190418
  Serious: Yes (Other)
  Sender: FDA-Public Use
  Company Number: PHEH2019US010442

PATIENT
  Age: 77 Year
  Sex: Female

DRUGS (19)
  1. ASPIRIN. [Concomitant]
     Active Substance: ASPIRIN
     Indication: PRODUCT USED FOR UNKNOWN INDICATION
     Dosage: 81 MG, QD
     Route: 048
  2. DURAGESIC [Concomitant]
     Active Substance: FENTANYL
     Indication: PRODUCT USED FOR UNKNOWN INDICATION
     Dosage: 1 DF, UNK (1 PATCH ONS SKIN EVERY THIRD DAY)
     Route: 065
  3. OSTEO BI-FLEX [Concomitant]
     Active Substance: CHONDROITIN SULFATE A\GLUCOSAMINE
     Indication: PRODUCT USED FOR UNKNOWN INDICATION
     Dosage: 1 DF, QD
     Route: 048
  4. LETROZOLE. [Suspect]
     Active Substance: LETROZOLE
     Indication: METASTASES TO LUNG
  5. LETROZOLE. [Suspect]
     Active Substance: LETROZOLE
     Indication: BONE CANCER
  6. TENORMIN [Concomitant]
     Active Substance: ATENOLOL
     Indication: PRODUCT USED FOR UNKNOWN INDICATION
     Dosage: 50 MG, QD
     Route: 048
  7. LETROZOLE. [Suspect]
     Active Substance: LETROZOLE
     Indication: BREAST CANCER FEMALE
     Dosage: 2.5 MG, QD
     Route: 048
     Dates: start: 201801
  8. PALBOCICLIB [Suspect]
     Active Substance: PALBOCICLIB
     Indication: METASTASES TO LUNG
  9. PROZAC [Concomitant]
     Active Substance: FLUOXETINE HYDROCHLORIDE
     Indication: PRODUCT USED FOR UNKNOWN INDICATION
     Dosage: 20 MG, BID
     Route: 048
  10. PRINIVIL [Concomitant]
     Active Substance: LISINOPRIL
     Indication: PRODUCT USED FOR UNKNOWN INDICATION
     Dosage: 40 MG, QD
     Route: 048
  11. OMEGA 3 [Concomitant]
     Active Substance: OMEGA-3 FATTY ACIDS
     Indication: PRODUCT USED FOR UNKNOWN INDICATION
     Dosage: 1000 MG, QD
     Route: 048
  12. PALBOCICLIB [Suspect]
     Active Substance: PALBOCICLIB
     Indication: BONE CANCER
  13. NEURONTIN [Concomitant]
     Active Substance: GABAPENTIN
     Indication: PRODUCT USED FOR UNKNOWN INDICATION
     Dosage: 100 MG, BID
     Route: 048
  14. METAGLIP [Concomitant]
     Active Substance: GLIPIZIDE\METFORMIN HYDROCHLORIDE
     Indication: PRODUCT USED FOR UNKNOWN INDICATION
     Dosage: 1 DF, QD
     Route: 048
  15. NORCO [Concomitant]
     Active Substance: ACETAMINOPHEN\HYDROCODONE BITARTRATE
     Indication: PRODUCT USED FOR UNKNOWN INDICATION
     Dosage: 1 DF, Q4H
     Route: 048
  16. XGEVA [Concomitant]
     Active Substance: DENOSUMAB
     Indication: PRODUCT USED FOR UNKNOWN INDICATION
     Dosage: 125 MG, QD
     Route: 065
     Dates: start: 201801
  17. PALBOCICLIB [Suspect]
     Active Substance: PALBOCICLIB
     Indication: BREAST CANCER FEMALE
     Dosage: 12.5 MG, QD (3 WEEKS ON / 1 WEEK OFF)
     Route: 048
     Dates: start: 201801
  18. XANAX [Concomitant]
     Active Substance: ALPRAZOLAM
     Indication: PRODUCT USED FOR UNKNOWN INDICATION
     Dosage: 0.25 MG, BID
     Route: 065
  19. PRAVACHOL [Concomitant]
     Active Substance: PRAVASTATIN SODIUM
     Indication: PRODUCT USED FOR UNKNOWN INDICATION
     Dosage: 80 MG, QD
     Route: 048

REACTIONS (13)
  - Anaemia [Unknown]
  - Red blood cell count decreased [Unknown]
  - Heart rate decreased [Unknown]
  - Renal failure [Unknown]
  - Mean cell haemoglobin increased [Unknown]
  - Basophil count increased [Unknown]
  - Haemoglobin decreased [Unknown]
  - Mean cell volume increased [Unknown]
  - Hot flush [Unknown]
  - Haematocrit decreased [Unknown]
  - Red cell distribution width increased [Unknown]
  - Blood creatinine increased [Unknown]
  - Leukopenia [Unknown]

NARRATIVE: CASE EVENT DATE: 20181009
